FAERS Safety Report 9853303 (Version 2)
Quarter: 2014Q1

REPORT INFORMATION
  Report Type: Spontaneous
  Country: US (occurrence: US)
  Receive Date: 20140129
  Receipt Date: 20140303
  Transmission Date: 20141002
  Serious: Yes (Other)
  Sender: FDA-Public Use
  Company Number: US-JNJFOC-20140112883

PATIENT
  Age: 53 Year
  Sex: Female

DRUGS (1)
  1. CLADRIBINE [Suspect]
     Indication: HAIRY CELL LEUKAEMIA
     Dosage: AS A 7-DAY CONTINUOUS INTRAVENOUS INFUSION
     Route: 042
     Dates: start: 19910123, end: 19910130

REACTIONS (1)
  - Adenocarcinoma of colon [Unknown]
